FAERS Safety Report 4686124-2 (Version None)
Quarter: 2005Q2

REPORT INFORMATION
  Report Type: 
  Country: None (occurrence: None)
  Receive Date: 20050603
  Receipt Date: 20050531
  Transmission Date: 20051028
  Serious: Yes (Life-Threatening, Other)
  Sender: FDA-Public Use
  Company Number: HQWYE114317SEP04

PATIENT
  Age: 27 Year
  Sex: Male

DRUGS (6)
  1. PANTOZOL         DELAYED RELEASE [Suspect]
     Indication: HELICOBACTER GASTRITIS
     Dosage: 40 MG 2X PER 1 DAY, ORAL
     Route: 048
     Dates: start: 20040713
  2. AMOXICILLIN [Suspect]
     Indication: HELICOBACTER GASTRITIS
     Dosage: 1000 MG 2 X PER 1 DAY, ORAL
     Route: 048
     Dates: start: 20040713
  3. CARBAMAZEPINE [Suspect]
     Indication: EPILEPSY
     Dosage: 400 MG 3X PER 1 DAY, ORAL
     Route: 048
  4. CLARITHROMYCIN [Suspect]
     Indication: HELICOBACTER GASTRITIS
     Dosage: 500 MG 2X PER 1 DAY, ORAL
     Route: 048
     Dates: start: 20040713
  5. ZENOTROPIL [Concomitant]
  6. SUBUTEX [Concomitant]

REACTIONS (5)
  - DRUG INTERACTION [None]
  - DYSPNOEA [None]
  - HYPERHIDROSIS [None]
  - PANIC ATTACK [None]
  - TACHYCARDIA [None]
